FAERS Safety Report 23037316 (Version 1)
Quarter: 2023Q4

REPORT INFORMATION
  Report Type: Report from Study
  Country: US (occurrence: US)
  Receive Date: 20231006
  Receipt Date: 20231006
  Transmission Date: 20240110
  Serious: Yes (Other)
  Sender: FDA-Public Use
  Company Number: US-JNJFOC-20230968736

PATIENT
  Age: 54 Year
  Sex: Male

DRUGS (1)
  1. SPRAVATO [Suspect]
     Active Substance: ESKETAMINE
     Indication: Depression
     Dosage: ^56 MG, 1 TOTAL DOSE^
     Dates: start: 20230921, end: 20230921

REACTIONS (5)
  - Suicidal ideation [Unknown]
  - Fall [Unknown]
  - Crying [Unknown]
  - Feeling abnormal [Unknown]
  - Euphoric mood [Unknown]

NARRATIVE: CASE EVENT DATE: 20230901
